FAERS Safety Report 7523243-7 (Version None)
Quarter: 2011Q2

REPORT INFORMATION
  Report Type: 
  Country: None (occurrence: None)
  Receive Date: 20110603
  Receipt Date: 20110525
  Transmission Date: 20111010
  Serious: Yes (Death)
  Sender: FDA-Public Use
  Company Number: CA-CELGENEUS-028-C5013-11050629

PATIENT
  Sex: Male
  Weight: 82.8 kg

DRUGS (22)
  1. SODIUM PHOSPHATE [Concomitant]
     Dosage: 30 MILLIEQUIVALENTS
     Route: 051
     Dates: start: 20110426, end: 20110426
  2. LACTULOSE [Concomitant]
     Indication: CONSTIPATION PROPHYLAXIS
     Dosage: 15-30 ML
     Route: 048
     Dates: start: 20110426, end: 20110430
  3. PHOSPHATE NOVARTIS [Concomitant]
     Indication: SUPPLEMENTATION THERAPY
     Dosage: 500 MILLIGRAM
     Route: 048
     Dates: start: 20110428, end: 20110430
  4. MORPHINE [Concomitant]
     Dosage: 3 MILLIGRAM
     Route: 051
     Dates: start: 20110429
  5. PAMIDRONATE DISODIUM [Concomitant]
     Dosage: 60 MILLIGRAM
     Route: 051
     Dates: start: 20110430
  6. MAGNESIUM OXIDE [Concomitant]
     Dosage: 400 MILLIGRAM
     Route: 048
     Dates: start: 20090101, end: 20110430
  7. SENOKOT [Concomitant]
     Indication: CONSTIPATION PROPHYLAXIS
     Dosage: 1-2 TABS
     Route: 048
     Dates: start: 20110426, end: 20110430
  8. CAPTOPRIL [Concomitant]
     Dosage: 25 MILLIGRAM
     Route: 060
     Dates: start: 20110429
  9. SOLU-CORTEF [Concomitant]
     Dosage: 125 MILLIGRAM
     Route: 051
     Dates: start: 20110430
  10. DILAUDID [Concomitant]
     Indication: PAIN
     Dosage: 1-2 TABS
     Route: 048
     Dates: start: 20110428, end: 20110430
  11. LENALIDOMIDE [Suspect]
     Dosage: LEVEL 0
     Route: 048
     Dates: start: 20110418, end: 20110428
  12. PREDNISONE [Concomitant]
     Dosage: 5 MILLIGRAM
     Route: 065
  13. ALLOPURINOL [Concomitant]
     Indication: PROPHYLAXIS
     Dosage: 300 MILLIGRAM
     Route: 048
     Dates: start: 20110415, end: 20110430
  14. COLACE [Concomitant]
     Indication: CONSTIPATION PROPHYLAXIS
     Dosage: 100 MILLIGRAM
     Route: 048
     Dates: start: 20110426, end: 20110430
  15. LASIX [Concomitant]
     Dosage: 40 MILLIGRAM
     Route: 051
     Dates: start: 20110429
  16. PAMIDRONATE DISODIUM [Concomitant]
     Dosage: 90 MILLIGRAM
     Route: 051
     Dates: start: 20110421, end: 20110421
  17. GRAVOL TAB [Concomitant]
     Dosage: 50 MILLIGRAM
     Route: 051
     Dates: start: 20110401
  18. VITAMIN D [Concomitant]
     Indication: SUPPLEMENTATION THERAPY
     Dosage: 2000 MICROGRAM
     Route: 048
     Dates: start: 20050101, end: 20110430
  19. NITROGLYCERIN [Concomitant]
     Dosage: 10 MG/MIN
     Route: 041
     Dates: start: 20110429
  20. PREDNISONE [Concomitant]
     Dosage: 30 MILLIGRAM
     Route: 048
     Dates: start: 20110428, end: 20110430
  21. NASONEX [Concomitant]
     Route: 045
  22. ATIVAN [Concomitant]
     Dosage: 1 MILLIGRAM
     Route: 051
     Dates: start: 20110429

REACTIONS (1)
  - PNEUMONIA [None]
